FAERS Safety Report 18822020 (Version 2)
Quarter: 2021Q1

REPORT INFORMATION
  Report Type: Spontaneous
  Country: US (occurrence: US)
  Receive Date: 20210202
  Receipt Date: 20210215
  Transmission Date: 20210419
  Serious: No
  Sender: FDA-Public Use
  Company Number: US-PFIZER INC-2018366836

PATIENT
  Age: 81 Year
  Sex: Female

DRUGS (1)
  1. LYRICA [Suspect]
     Active Substance: PREGABALIN
     Dosage: 1200 MG, DAILY [1 CAPSULE EVERY MORNING (AM) AND NOON, 2 CAPSULES EVERY NIGHT AT BEDTIME (HS)]
     Route: 048

REACTIONS (2)
  - Prescribed overdose [Unknown]
  - Hypoacusis [Unknown]
